FAERS Safety Report 11283004 (Version 1)
Quarter: 2015Q3

REPORT INFORMATION
  Report Type: Spontaneous
  Country: GB (occurrence: GB)
  Receive Date: 20150720
  Receipt Date: 20150720
  Transmission Date: 20151125
  Serious: Yes (Other)
  Sender: FDA-Public Use
  Company Number: GB-TEVA-576833ACC

PATIENT
  Age: 49 Year
  Sex: Female
  Weight: 72 kg

DRUGS (4)
  1. CEFALEXIN [Concomitant]
     Active Substance: CEPHALEXIN
     Dosage: 3 DOSAGE FORMS DAILY;
     Dates: start: 20150625
  2. DOXYCYCLINE. [Concomitant]
     Active Substance: DOXYCYCLINE
     Dosage: TWO NOW, THEN ONE DAILY.
     Dates: start: 20150330, end: 20150406
  3. TRAMADOL. [Concomitant]
     Active Substance: TRAMADOL
     Dosage: TAKE 1 OR 2 UP TO 4 TIMES DAILY.
     Dates: start: 20141205
  4. NITROFURANTOIN. [Suspect]
     Active Substance: NITROFURANTOIN
     Dates: start: 20150625

REACTIONS (3)
  - Nausea [Recovering/Resolving]
  - Malaise [Recovering/Resolving]
  - Hyperhidrosis [Recovering/Resolving]

NARRATIVE: CASE EVENT DATE: 20150629
